FAERS Safety Report 5627717-5 (Version None)
Quarter: 2008Q1

REPORT INFORMATION
  Report Type: 
  Country: None (occurrence: None)
  Receive Date: 20080215
  Receipt Date: 20080213
  Transmission Date: 20080703
  Serious: Yes (Other)
  Sender: FDA-Public Use
  Company Number: AU-ASTRAZENECA-2008AP00696

PATIENT
  Age: 13131 Day
  Sex: Female
  Weight: 59 kg

DRUGS (6)
  1. SEROQUEL [Suspect]
     Indication: SUICIDAL IDEATION
     Route: 048
     Dates: start: 20071205, end: 20080109
  2. LEXAPRO [Concomitant]
     Indication: DEPRESSION
     Route: 048
     Dates: start: 20071113, end: 20071217
  3. LEXAPRO [Concomitant]
     Indication: SUICIDAL IDEATION
     Route: 048
     Dates: start: 20071113, end: 20071217
  4. EFFEXOR [Concomitant]
     Indication: DEPRESSION
     Route: 048
     Dates: start: 20071218
  5. EFFEXOR [Concomitant]
     Indication: SUICIDAL IDEATION
     Route: 048
     Dates: start: 20071218
  6. DIAZEPAM [Concomitant]
     Indication: ANXIETY
     Route: 048
     Dates: start: 20071129

REACTIONS (2)
  - LEUKOPENIA [None]
  - NEUTROPENIA [None]
